FAERS Safety Report 8902840 (Version 1)
Quarter: 2012Q4

REPORT INFORMATION
  Report Type: 
  Country: US (occurrence: US)
  Receive Date: 20121112
  Receipt Date: 20121112
  Transmission Date: 20130627
  Serious: Yes (Hospitalization)
  Sender: FDA-Public Use
  Company Number: US-MYLANLABS-2012S1022551

PATIENT
  Age: 28 Year
  Sex: Female

DRUGS (5)
  1. AMITRIPTYLINE [Suspect]
     Dosage: 125mg
     Route: 065
  2. NAPROXEN [Concomitant]
     Dosage: 375mg PRN
     Route: 065
  3. OXYCODONE/APAP                     /01601701/ [Concomitant]
     Dosage: oxycodone/paracetamol 5/325mg PRN
     Route: 065
  4. DIAZEPAM [Concomitant]
     Dosage: 5mg
     Route: 065
  5. LORAZEPAM [Concomitant]
     Route: 065

REACTIONS (7)
  - Withdrawal syndrome [Recovered/Resolved]
  - Vomiting [Recovered/Resolved]
  - Dehydration [Recovered/Resolved]
  - Weight decreased [Recovered/Resolved]
  - Anxiety [Recovered/Resolved]
  - Back pain [Recovered/Resolved]
  - Exposure during pregnancy [Unknown]
